FAERS Safety Report 10721637 (Version 2)
Quarter: 2015Q3

REPORT INFORMATION
  Report Type: Report from Study
  Country: US (occurrence: US)
  Receive Date: 20150119
  Receipt Date: 20150722
  Transmission Date: 20151125
  Serious: Yes (Other)
  Sender: FDA-Public Use
  Company Number: US-GILEAD-2015-0131744

PATIENT
  Age: 47 Year
  Sex: Female

DRUGS (2)
  1. RANOLAZINE [Suspect]
     Active Substance: RANOLAZINE
     Indication: PERIPHERAL ARTERIAL OCCLUSIVE DISEASE
  2. RANOLAZINE [Suspect]
     Active Substance: RANOLAZINE
     Indication: CORONARY ARTERY DISEASE
     Dosage: 500 MG, UNK
     Route: 048

REACTIONS (6)
  - Blindness [Unknown]
  - Allergy to metals [Unknown]
  - Off label use [Unknown]
  - Stent placement [Unknown]
  - Chest pain [Unknown]
  - Diabetes mellitus [Not Recovered/Not Resolved]
